FAERS Safety Report 8888768 (Version 1)
Quarter: 2012Q4

REPORT INFORMATION
  Report Type: 
  Country: CA (occurrence: CA)
  Receive Date: 20121106
  Receipt Date: 20121106
  Transmission Date: 20130627
  Serious: Yes (Hospitalization)
  Sender: FDA-Public Use
  Company Number: CA-AMGEN-CANSP2012044997

PATIENT
  Age: 56 Year
  Sex: Female

DRUGS (7)
  1. NEULASTA [Suspect]
     Indication: FEBRILE NEUTROPENIA
     Dosage: 10 UNK, UNK
  2. NEULASTA [Suspect]
     Dosage: UNK
     Dates: start: 20120626
  3. PREDNISONE [Concomitant]
  4. PENTALOC [Concomitant]
  5. GAVISCON                           /00237601/ [Concomitant]
  6. MORPHINE [Concomitant]
  7. LORAZEPAM [Concomitant]

REACTIONS (2)
  - Neutropenia [Recovered/Resolved]
  - Urinary tract infection [Recovered/Resolved]
